FAERS Safety Report 9342901 (Version 1)
Quarter: 2013Q2

REPORT INFORMATION
  Report Type: Spontaneous
  Country: CN (occurrence: CN)
  Receive Date: 20130611
  Receipt Date: 20130611
  Transmission Date: 20140414
  Serious: Yes (Hospitalization)
  Sender: FDA-Public Use
  Company Number: CN-GLAXOSMITHKLINE-B0898503A

PATIENT
  Age: 13 Year
  Sex: Male
  Weight: 33.5 kg

DRUGS (1)
  1. LAMICTAL [Suspect]
     Indication: EPILEPSY
     Dosage: 25MG TWICE PER DAY
     Route: 048
     Dates: start: 20120818, end: 20121009

REACTIONS (9)
  - Epilepsy [Recovering/Resolving]
  - Gastrointestinal disorder [Recovering/Resolving]
  - Vomiting [Recovering/Resolving]
  - Decreased appetite [Recovering/Resolving]
  - Developmental delay [Recovering/Resolving]
  - Injection site haemorrhage [Recovering/Resolving]
  - Rash macular [Recovering/Resolving]
  - Skin disorder [Recovering/Resolving]
  - Depressed mood [Recovering/Resolving]
